FAERS Safety Report 14660136 (Version 1)
Quarter: 2018Q1

REPORT INFORMATION
  Report Type: Spontaneous
  Country: US (occurrence: US)
  Receive Date: 20180317
  Receipt Date: 20180317
  Transmission Date: 20180509
  Serious: Yes (Other)
  Sender: FDA-Public Use
  Company Number: None

PATIENT
  Age: 48 Year

DRUGS (2)
  1. SUBOXONE [Concomitant]
     Active Substance: BUPRENORPHINE HYDROCHLORIDE\NALOXONE HYDROCHLORIDE
  2. BUPRENORPHINE -NALOXONE 2MG/0.5MG TABLETS [Suspect]
     Active Substance: BUPRENORPHINE HYDROCHLORIDE\NALOXONE HYDROCHLORIDE
     Indication: DRUG ABUSE
     Dosage: DOSE - NALOXONE TABLET 2MG/0.5MG?FREQUENCY - 1/2 TAB DAILY
     Route: 060
     Dates: start: 20170725, end: 20170825

REACTIONS (8)
  - Hyperhidrosis [None]
  - Tremor [None]
  - Nausea [None]
  - Drug ineffective [None]
  - Product physical issue [None]
  - Tachycardia [None]
  - Headache [None]
  - Migraine [None]

NARRATIVE: CASE EVENT DATE: 20170728
